FAERS Safety Report 9542325 (Version 1)
Quarter: 2013Q2

REPORT INFORMATION
  Report Type: Spontaneous
  Country: US (occurrence: None)
  Receive Date: 20130524
  Receipt Date: 20130524
  Transmission Date: 20140414
  Serious: No
  Sender: FDA-Public Use
  Company Number: PHEH2012US025025

PATIENT
  Age: 54 Year
  Sex: Female
  Weight: 65.3 kg

DRUGS (5)
  1. GILENYA [Suspect]
     Indication: RELAPSING-REMITTING MULTIPLE SCLEROSIS
     Route: 048
     Dates: start: 20121016
  2. AMPYRA(FAMPRIDINE) [Concomitant]
  3. NUVIGIL(ARMODAFINIL) [Concomitant]
  4. SYNTHROID(LEVOTHYROXINE SODIUM) [Concomitant]
  5. VESICARE(SOLIFENACIN SUCCINATE) [Concomitant]

REACTIONS (1)
  - Memory impairment [None]
